FAERS Safety Report 23265490 (Version 1)
Quarter: 2023Q4

REPORT INFORMATION
  Report Type: Spontaneous
  Country: US (occurrence: US)
  Receive Date: 20231206
  Receipt Date: 20231206
  Transmission Date: 20240109
  Serious: No
  Sender: FDA-Public Use
  Company Number: US-STERISCIENCE B.V.-2022-ST-000471

PATIENT
  Age: 72 Year
  Sex: Male

DRUGS (11)
  1. BUPIVACAINE [Suspect]
     Active Substance: BUPIVACAINE
     Indication: Postoperative analgesia
     Dosage: 30 MILLILITER
     Route: 065
  2. BUPIVACAINE [Suspect]
     Active Substance: BUPIVACAINE
     Indication: Anaesthesia
     Dosage: PRIOR TO EXTUBATION- TOTAL OF 15ML OF 0.125% BUPIVACAINE EPIDURALLY IN DIVIDED DOSES.
     Route: 008
  3. BUPIVACAINE [Suspect]
     Active Substance: BUPIVACAINE
     Dosage: AN EPIDURAL INFUSION OF 0.1% BUPIVACAINE WAS STARTED
     Route: 008
  4. FENTANYL [Suspect]
     Active Substance: FENTANYL\FENTANYL CITRATE
     Indication: Analgesic therapy
     Dosage: ON ARRIVAL TO PACU, AN EPIDURAL INFUSION OF 2 MCG/ML FENTANYL AND 0.1% BUPIVACAINE WAS STARTED: BASA
     Route: 008
  5. FENTANYL [Suspect]
     Active Substance: FENTANYL\FENTANYL CITRATE
     Indication: Postoperative analgesia
     Dosage: INTRAOPERATIVELY IN FIRST STAGE OF SURGERY
     Route: 042
  6. FENTANYL [Suspect]
     Active Substance: FENTANYL\FENTANYL CITRATE
     Dosage: BEFORE SECOND STAGE OF SURGERY, DURING LUMBAR EPIDURAL PLACEMENT.
     Route: 042
  7. FENTANYL [Suspect]
     Active Substance: FENTANYL\FENTANYL CITRATE
     Dosage: INTRAOPERATIVELY IN SECOND STAGE OF SURGERY
     Route: 042
  8. KETAMINE [Suspect]
     Active Substance: KETAMINE
     Indication: Analgesic therapy
     Dosage: 50 MILLIGRAM
     Route: 042
  9. BUPIVACAINE [Suspect]
     Active Substance: BUPIVACAINE
     Indication: Anaesthesia
     Dosage: 20 MILLILITER
     Route: 065
  10. IBUPROFEN [Concomitant]
     Active Substance: IBUPROFEN
     Indication: Product used for unknown indication
     Dosage: DURING HIS HOSPITALISATION POST-SURGERY
     Route: 048
  11. ACETAMINOPHEN [Concomitant]
     Active Substance: ACETAMINOPHEN
     Indication: Product used for unknown indication
     Dosage: DURING HIS HOSPITALISATION POST-SURGERY
     Route: 048

REACTIONS (1)
  - Dizziness [Recovered/Resolved]
